FAERS Safety Report 8155907-9 (Version None)
Quarter: 2012Q1

REPORT INFORMATION
  Report Type: 
  Country: None (occurrence: None)
  Receive Date: 20120222
  Receipt Date: 20120213
  Transmission Date: 20120608
  Serious: Yes (Other)
  Sender: FDA-Public Use
  Company Number: US-JNJFOC-20111207094

PATIENT
  Sex: Female
  Weight: 72.12 kg

DRUGS (1)
  1. RISPERDAL [Suspect]
     Indication: BIPOLAR I DISORDER
     Route: 048
     Dates: start: 20041101, end: 20100101

REACTIONS (1)
  - INTERSTITIAL LUNG DISEASE [None]
